FAERS Safety Report 8123714-9 (Version None)
Quarter: 2012Q1

REPORT INFORMATION
  Report Type: 
  Country: None (occurrence: None)
  Receive Date: 20120208
  Receipt Date: 20120201
  Transmission Date: 20120608
  Serious: Yes (Death, Hospitalization)
  Sender: FDA-Public Use
  Company Number: JP-ROCHE-549556

PATIENT
  Sex: Male
  Weight: 62 kg

DRUGS (12)
  1. RITUXAN [Suspect]
     Route: 041
     Dates: start: 20061031, end: 20061031
  2. MYCOPHENOLATE MOFETIL (CELLCEPT) [Suspect]
     Route: 048
     Dates: start: 20061108, end: 20061119
  3. MYCOPHENOLATE MOFETIL (CELLCEPT) [Suspect]
     Route: 048
     Dates: start: 20061118, end: 20061204
  4. PREDNISOLONE [Concomitant]
     Route: 048
  5. RITUXAN [Suspect]
     Indication: PROPHYLAXIS AGAINST TRANSPLANT REJECTION
     Dosage: DRUG: RITUXAN INJECTION
     Route: 041
     Dates: start: 20061024, end: 20061024
  6. BREDININ [Concomitant]
     Route: 048
  7. PREDNISOLONE [Concomitant]
     Dosage: ROUTE: INTRAVENOUS (NOT OTHERWISE SPECIFIED)
     Route: 042
     Dates: start: 20061107, end: 20061107
  8. SOLU-MEDROL [Concomitant]
     Dosage: ROUTE: INTRAVENOUS (NOT OTHERWISE SPECIFIED)
     Route: 042
     Dates: start: 20061107, end: 20061107
  9. MYCOPHENOLATE MOFETIL (CELLCEPT) [Suspect]
     Indication: PROPHYLAXIS AGAINST TRANSPLANT REJECTION
     Route: 048
     Dates: start: 20061102, end: 20061106
  10. PROGRAF [Suspect]
     Indication: PROPHYLAXIS AGAINST TRANSPLANT REJECTION
     Dosage: FORM: ORAL FORMULATION (NOT OTHERWISE SPECIFIED)
     Route: 048
  11. SPANIDIN [Concomitant]
     Route: 041
     Dates: start: 20061107, end: 20061113
  12. BREDININ [Concomitant]
     Route: 048
     Dates: start: 20061202, end: 20061203

REACTIONS (8)
  - NEOPLASM [None]
  - PEPTIC ULCER HAEMORRHAGE [None]
  - CYTOMEGALOVIRUS ENTEROCOLITIS [None]
  - ILEAL FISTULA [None]
  - BRONCHOPULMONARY ASPERGILLOSIS [None]
  - ANAL FISTULA [None]
  - CYTOMEGALOVIRUS INFECTION [None]
  - PNEUMONIA CYTOMEGALOVIRAL [None]
